FAERS Safety Report 8922995 (Version 2)
Quarter: 2012Q4

REPORT INFORMATION
  Report Type: 
  Country: DK (occurrence: DK)
  Receive Date: 20121123
  Receipt Date: 20121205
  Transmission Date: 20130627
  Serious: Yes (Hospitalization, Other)
  Sender: FDA-Public Use
  Company Number: DK-JNJFOC-20121111495

PATIENT
  Age: 22 Year
  Sex: Female

DRUGS (7)
  1. XEPLION [Suspect]
     Indication: SCHIZOPHRENIA, DISORGANISED TYPE
     Route: 030
     Dates: start: 20120816
  2. XEPLION [Suspect]
     Indication: SCHIZOPHRENIA, DISORGANISED TYPE
     Route: 030
     Dates: start: 20120725
  3. XEPLION [Suspect]
     Indication: SCHIZOPHRENIA, DISORGANISED TYPE
     Route: 030
     Dates: start: 20120605
  4. XEPLION [Suspect]
     Indication: SCHIZOPHRENIA, DISORGANISED TYPE
     Route: 030
     Dates: start: 20120626
  5. RISPERIDAL [Suspect]
     Indication: SCHIZOPHRENIA, DISORGANISED TYPE
     Route: 030
     Dates: start: 20120202, end: 20120522
  6. RISPERIDAL [Suspect]
     Indication: SCHIZOPHRENIA, DISORGANISED TYPE
     Route: 030
     Dates: start: 20120910
  7. ZYPREXA [Suspect]
     Indication: PRODUCT USED FOR UNKNOWN INDICATION
     Dosage: 10-15 as per necessary
     Route: 065

REACTIONS (4)
  - Suicidal ideation [Recovered/Resolved]
  - Hallucination [Recovering/Resolving]
  - Persecutory delusion [Recovering/Resolving]
  - Psychotic disorder [Unknown]
